FAERS Safety Report 5326441-6 (Version None)
Quarter: 2007Q2

REPORT INFORMATION
  Report Type: 
  Country: None (occurrence: None)
  Receive Date: 20070516
  Receipt Date: 20070511
  Transmission Date: 20071010
  Serious: Yes (Hospitalization)
  Sender: FDA-Public Use
  Company Number: CN-JNJFOC-20070501651

PATIENT
  Age: 13 Month
  Sex: Male
  Weight: 12 kg

DRUGS (5)
  1. CHILDREN'S MOTRIN [Suspect]
  2. CHILDREN'S MOTRIN [Suspect]
     Indication: PYREXIA
  3. CEPHALEXIN [Concomitant]
     Indication: UPPER RESPIRATORY TRACT INFECTION
  4. TRIMETHOPRIM [Concomitant]
     Indication: UPPER RESPIRATORY TRACT INFECTION
  5. PENICILLIN [Concomitant]
     Indication: UPPER RESPIRATORY TRACT INFECTION
     Route: 042

REACTIONS (1)
  - ROSEOLA [None]
